FAERS Safety Report 5884532-5 (Version None)
Quarter: 2008Q3

REPORT INFORMATION
  Report Type: 
  Country: None (occurrence: None)
  Receive Date: 20080916
  Receipt Date: 20080905
  Transmission Date: 20090109
  Serious: Yes (Other)
  Sender: FDA-Public Use
  Company Number: US-JNJFOC-20080601569

PATIENT
  Sex: Male
  Weight: 80 kg

DRUGS (11)
  1. INFLIXIMAB [Suspect]
     Indication: CROHN'S DISEASE
     Route: 042
  2. BUDESONIDE [Suspect]
     Indication: CROHN'S DISEASE
  3. AZATHIOPRINE [Concomitant]
     Indication: CROHN'S DISEASE
  4. ANTIBIOTICS [Concomitant]
     Indication: CROHN'S DISEASE
  5. ANTIHISTAMINES [Concomitant]
  6. ANTIHISTAMINES [Concomitant]
  7. ANTIHISTAMINES [Concomitant]
  8. ANTIHISTAMINES [Concomitant]
     Indication: PREMEDICATION
  9. ACETAMINOPHEN [Concomitant]
  10. ACETAMINOPHEN [Concomitant]
     Indication: PREMEDICATION
  11. CIPRO [Concomitant]

REACTIONS (1)
  - PULMONARY TUBERCULOSIS [None]
